FAERS Safety Report 6294428-5 (Version None)
Quarter: 2009Q3

REPORT INFORMATION
  Report Type: 
  Country: None (occurrence: None)
  Receive Date: 20090803
  Receipt Date: 20090721
  Transmission Date: 20100115
  Serious: Yes (Other)
  Sender: FDA-Public Use
  Company Number: DK-ROCHE-646259

PATIENT

DRUGS (4)
  1. SAQUINAVIR [Suspect]
     Route: 065
  2. DIDANOSINE [Suspect]
     Route: 065
  3. ABACAVIR [Suspect]
     Route: 065
  4. LOPINAVIR [Suspect]
     Route: 065

REACTIONS (1)
  - TREATMENT FAILURE [None]
